FAERS Safety Report 8923618 (Version 1)
Quarter: 2012Q4

REPORT INFORMATION
  Report Type: Spontaneous
  Country: GB (occurrence: None)
  Receive Date: 20121115
  Receipt Date: 20121115
  Transmission Date: 20130627
  Serious: Yes (Hospitalization)
  Sender: FDA-Public Use
  Company Number: 2012AP003768

PATIENT
  Age: 61 Year

DRUGS (13)
  1. OMEPRAZOLE [Suspect]
     Indication: DRUG USE FOR UNKNOWN INDICATION
     Route: 048
     Dates: start: 20110315
  2. PIPERACILLIN AND TAZOBACTAM [Suspect]
     Indication: DRUG USE FOR UNKNOWN INDICATION
     Dates: start: 20110421
  3. ADCAL-D3 (LEKOVIT CA) [Concomitant]
  4. BECLOMETASONE (BECLOMETASONE) [Concomitant]
  5. CO-CODAMOL (PANADEINE CO) [Concomitant]
  6. CREON (PANCREATIN) [Concomitant]
  7. FERROUS FUMARATE (FERROUS FUMARATE) [Concomitant]
  8. MOVICOL [Concomitant]
  9. NICORETTE [Suspect]
  10. PARACETAMOL (PARACETAMOL) [Concomitant]
  11. TAMSULOSIN (TAMSULOSIN) [Concomitant]
  12. TRAMADOL (TRAMADOL) [Concomitant]
  13. ZINC (ZINC) [Concomitant]

REACTIONS (1)
  - Clostridium test positive [None]
